FAERS Safety Report 5618767-3 (Version None)
Quarter: 2008Q1

REPORT INFORMATION
  Report Type: 
  Country: None (occurrence: None)
  Receive Date: 20080207
  Receipt Date: 20080124
  Transmission Date: 20080703
  Serious: Yes (Other)
  Sender: FDA-Public Use
  Company Number: DE-ELI_LILLY_AND_COMPANY-DE200801005574

PATIENT
  Age: 60 Year
  Sex: Male

DRUGS (12)
  1. GEMZAR [Suspect]
     Indication: HODGKIN'S DISEASE
     Dosage: 800 MG/M2, ON DAYS 1 AND 4 OF 21-DAY CYCLES
     Route: 042
  2. VINCRISTINE [Concomitant]
     Indication: HODGKIN'S DISEASE
     Dosage: 1.4 MG/M2, ON DAY 8 OF 21-DAY CYCLES
     Route: 042
  3. BLEOMYCIN [Concomitant]
     Indication: HODGKIN'S DISEASE
     Dosage: 10 MG/M2, ON DAY 8 OF 21-DAY CYCLES
     Route: 042
  4. DOXORUBICIN [Concomitant]
     Indication: HODGKIN'S DISEASE
     Dosage: 35 MG/M2, ON DAY 1 OF 21-DAY CYCLES
     Route: 042
  5. CYCLOPHOSPHAMIDE [Concomitant]
     Indication: HODGKIN'S DISEASE
     Dosage: 1250 MG/M2, ON DAY 1 OF 21-DAY CYCLES
     Route: 042
  6. PROCARBAZINE [Concomitant]
     Indication: HODGKIN'S DISEASE
     Dosage: 100 MG/M2, DAY 1-7 OF 21-DAY CYCLES
     Route: 048
  7. PROCARBAZINE [Concomitant]
     Dosage: UNK, UNKNOWN
     Route: 065
  8. PREDNISONE TAB [Concomitant]
     Indication: HODGKIN'S DISEASE
     Dosage: 40 MG/M2, ON DAY 1-14 OF 21-DAY CYCLES
     Route: 048
  9. PREDNISONE TAB [Concomitant]
     Dosage: UNK, UNKNOWN
     Route: 065
  10. NEUPOGEN [Concomitant]
     Indication: HODGKIN'S DISEASE
     Dosage: UNK, ON DAY 8-13 OF 21-DAY CYCLES
     Route: 058
  11. CHLORAMBUCIL [Concomitant]
     Indication: HODGKIN'S DISEASE
     Dosage: UNK, UNKNOWN
     Route: 065
  12. VINBLASTINE SULFATE [Concomitant]
     Indication: HODGKIN'S DISEASE
     Dosage: UNK, UNKNOWN
     Route: 065

REACTIONS (2)
  - DRUG INTERACTION [None]
  - PULMONARY TOXICITY [None]
